FAERS Safety Report 17481510 (Version 1)
Quarter: 2020Q1

REPORT INFORMATION
  Report Type: Other
  Country: BG (occurrence: BG)
  Receive Date: 20200302
  Receipt Date: 20200302
  Transmission Date: 20200409
  Serious: No
  Sender: FDA-Public Use
  Company Number: BG-AJANTA PHARMA USA INC.-2081151

PATIENT
  Age: 74 Year
  Sex: Female

DRUGS (3)
  1. AMLODIPINE AND VALSARTAN [Suspect]
     Active Substance: AMLODIPINE\VALSARTAN
     Dates: start: 201810
  2. VALSARTAN. [Suspect]
     Active Substance: VALSARTAN
     Dates: start: 201707
  3. OLMESARTAN [Suspect]
     Active Substance: OLMESARTAN
     Indication: HYPERTENSION

REACTIONS (1)
  - Malignant melanoma [Not Recovered/Not Resolved]
